FAERS Safety Report 13192528 (Version 1)
Quarter: 2017Q1

REPORT INFORMATION
  Report Type: Spontaneous
  Country: GB (occurrence: GB)
  Receive Date: 20170207
  Receipt Date: 20170207
  Transmission Date: 20170428
  Serious: Yes (Hospitalization)
  Sender: FDA-Public Use
  Company Number: GB-TEVA-736866ACC

PATIENT
  Age: 83 Year
  Sex: Female
  Weight: 71.5 kg

DRUGS (10)
  1. CARBIMAZOLE [Concomitant]
     Active Substance: CARBIMAZOLE
  2. FUROSEMIDE. [Concomitant]
     Active Substance: FUROSEMIDE
  3. PARACETAMOL [Concomitant]
     Active Substance: ACETAMINOPHEN
  4. BISOPROLOL [Concomitant]
     Active Substance: BISOPROLOL
  5. PROCHLORPERAZINE. [Concomitant]
     Active Substance: PROCHLORPERAZINE
  6. ENALAPRIL [Concomitant]
     Active Substance: ENALAPRIL
  7. WARFARIN [Suspect]
     Active Substance: WARFARIN
     Indication: ATRIAL FIBRILLATION
  8. LATANOPROST. [Concomitant]
     Active Substance: LATANOPROST
  9. AMLODIPINE [Concomitant]
     Active Substance: AMLODIPINE BESYLATE
  10. SALBUTAMOL [Concomitant]
     Active Substance: ALBUTEROL
     Route: 055

REACTIONS (3)
  - Gastrointestinal ulcer [Unknown]
  - Upper gastrointestinal haemorrhage [Recovering/Resolving]
  - Cerebrovascular accident [Unknown]
